FAERS Safety Report 8364459-X (Version None)
Quarter: 2012Q2

REPORT INFORMATION
  Report Type: 
  Country: None (occurrence: None)
  Receive Date: 20120516
  Receipt Date: 20120408
  Transmission Date: 20120825
  Serious: Yes (Hospitalization)
  Sender: FDA-Public Use
  Company Number: US-ALEXION PHARMACEUTICALS INC.-A201101469

PATIENT
  Sex: Female

DRUGS (8)
  1. RISPERDAL [Concomitant]
     Dosage: 1 MG HS
  2. CLONAZEPAM [Concomitant]
     Dosage: 0.5 MG TID
  3. SOLIRIS [Suspect]
     Indication: PAROXYSMAL NOCTURNAL HAEMOGLOBINURIA
     Dosage: 900 MG Q2W
     Route: 042
     Dates: start: 20100101
  4. DOCUSATE SODIUM [Concomitant]
     Dosage: 100 MG HS
  5. TRAZODONE HCL [Concomitant]
     Dosage: 50 MG HS PRN
  6. POTASSIUM CHLORIDE [Concomitant]
     Dosage: 20 MEQ QD
  7. LEXAPRO [Concomitant]
     Dosage: 10 MG QD
  8. CELEXA [Concomitant]
     Dosage: 20 MG QD

REACTIONS (7)
  - DRUG SCREEN POSITIVE [None]
  - SUICIDE ATTEMPT [None]
  - ANXIETY [None]
  - DEPRESSION [None]
  - PSYCHIATRIC SYMPTOM [None]
  - CATHETER PLACEMENT [None]
  - ABDOMINAL PAIN [None]
